FAERS Safety Report 22640027 (Version 7)
Quarter: 2023Q4

REPORT INFORMATION
  Report Type: Report from Study
  Country: US (occurrence: US)
  Receive Date: 20230626
  Receipt Date: 20231024
  Transmission Date: 20240110
  Serious: No
  Sender: FDA-Public Use
  Company Number: US-002147023-NVSC2023US142999

PATIENT
  Sex: Female

DRUGS (1)
  1. KESIMPTA [Suspect]
     Active Substance: OFATUMUMAB
     Indication: Product used for unknown indication
     Dosage: 20 MG, QMO
     Route: 058

REACTIONS (10)
  - Pain [Unknown]
  - Hyperhidrosis [Recovering/Resolving]
  - Weight decreased [Unknown]
  - Decreased appetite [Unknown]
  - Tooth disorder [Unknown]
  - Food intolerance [Unknown]
  - Memory impairment [Unknown]
  - Nausea [Recovering/Resolving]
  - Vomiting [Unknown]
  - Chills [Unknown]
